FAERS Safety Report 10607733 (Version 1)
Quarter: 2014Q4

REPORT INFORMATION
  Report Type: Spontaneous
  Country: KR (occurrence: KR)
  Receive Date: 20141125
  Receipt Date: 20141125
  Transmission Date: 20150529
  Serious: Yes (Other)
  Sender: FDA-Public Use
  Company Number: KR-BAYER-2014-168857

PATIENT
  Sex: Male

DRUGS (1)
  1. NEXAVAR [Suspect]
     Active Substance: SORAFENIB
     Indication: HEPATOCELLULAR CARCINOMA
     Dosage: 1 DF, QD
     Route: 048

REACTIONS (4)
  - Blood pressure systolic increased [Recovering/Resolving]
  - Haematemesis [None]
  - Heart rate decreased [None]
  - Diarrhoea [None]
